FAERS Safety Report 17534398 (Version 6)
Quarter: 2020Q4

REPORT INFORMATION
  Report Type: Report from Study
  Country: CO (occurrence: CO)
  Receive Date: 20200312
  Receipt Date: 20201221
  Transmission Date: 20210113
  Serious: Yes (Hospitalization)
  Sender: FDA-Public Use
  Company Number: CO-INCYTE CORPORATION-2020IN002250

PATIENT

DRUGS (11)
  1. AMLODIPINE [Suspect]
     Active Substance: AMLODIPINE BESYLATE
     Indication: HYPERTENSION
     Dosage: UNK, QD
     Route: 048
  2. PLATEMAX [Suspect]
     Active Substance: CLOPIDOGREL BISULFATE
     Indication: CARDIAC VALVE DISEASE
     Dosage: 75 MG
     Route: 065
  3. JAKAVI [Suspect]
     Active Substance: RUXOLITINIB
     Dosage: 15 MG, QD
     Route: 048
     Dates: start: 20200403
  4. FOLIC ACID. [Concomitant]
     Active Substance: FOLIC ACID
     Indication: PRODUCT USED FOR UNKNOWN INDICATION
     Dosage: UNK
     Route: 065
  5. JAKAVI [Suspect]
     Active Substance: RUXOLITINIB
     Indication: MYELOFIBROSIS
     Dosage: 10 MG, QD (STARTED 4 MONTHS AGO)
     Route: 048
  6. LOSARTAN. [Suspect]
     Active Substance: LOSARTAN
     Dosage: 50 MG, QD
     Route: 048
  7. LOSARTAN. [Suspect]
     Active Substance: LOSARTAN
     Indication: HYPERTENSION
     Dosage: 100 MG, Q12H
     Route: 048
  8. JAKAVI [Suspect]
     Active Substance: RUXOLITINIB
     Dosage: 15 MG, QD
     Route: 048
  9. OMEPRAZOLE. [Concomitant]
     Active Substance: OMEPRAZOLE
     Indication: PRODUCT USED FOR UNKNOWN INDICATION
     Dosage: UNK
     Route: 065
  10. JAKAVI [Suspect]
     Active Substance: RUXOLITINIB
     Dosage: 10 MG
     Route: 048
  11. VERAPAMIL [Concomitant]
     Active Substance: VERAPAMIL HYDROCHLORIDE
     Indication: PRODUCT USED FOR UNKNOWN INDICATION
     Dosage: UNK
     Route: 065

REACTIONS (22)
  - Dyspnoea [Recovered/Resolved]
  - Pyrexia [Unknown]
  - Ascites [Unknown]
  - Blood pressure decreased [Recovered/Resolved]
  - Asthenia [Unknown]
  - Second primary malignancy [Unknown]
  - Diarrhoea [Unknown]
  - Gastric disorder [Unknown]
  - Haemoglobin decreased [Unknown]
  - Fatigue [Recovered/Resolved]
  - General physical health deterioration [Unknown]
  - Vomiting [Unknown]
  - Haemorrhage [Unknown]
  - Balance disorder [Recovered/Resolved]
  - Fatigue [Recovered/Resolved]
  - Product dose omission issue [Unknown]
  - Choking sensation [Unknown]
  - Abdominal pain [Not Recovered/Not Resolved]
  - Colon cancer [Unknown]
  - Dyspnoea [Recovered/Resolved]
  - Inappropriate schedule of product administration [Unknown]
  - Intestinal mass [Unknown]

NARRATIVE: CASE EVENT DATE: 202001
